FAERS Safety Report 7290734-6 (Version None)
Quarter: 2011Q1

REPORT INFORMATION
  Report Type: 
  Country: None (occurrence: None)
  Receive Date: 20110214
  Receipt Date: 20110208
  Transmission Date: 20110831
  Serious: Yes (Hospitalization, Other)
  Sender: FDA-Public Use
  Company Number: JP-JNJFOC-20110201188

PATIENT
  Age: 84 Year
  Sex: Male

DRUGS (1)
  1. RISPERDAL [Suspect]
     Indication: DELIRIUM
     Route: 048

REACTIONS (3)
  - PNEUMONIA ASPIRATION [None]
  - PSEUDOBULBAR PALSY [None]
  - DYSPHAGIA [None]
